FAERS Safety Report 26155585 (Version 1)
Quarter: 2025Q4

REPORT INFORMATION
  Report Type: Spontaneous
  Country: JP (occurrence: JP)
  Receive Date: 20251215
  Receipt Date: 20251215
  Transmission Date: 20260117
  Serious: Yes (Hospitalization, Other)
  Sender: ALKEM
  Company Number: None

PATIENT
  Age: 59 Year
  Sex: Female

DRUGS (8)
  1. TACROLIMUS [Suspect]
     Active Substance: TACROLIMUS
     Indication: Dermatomyositis
     Dosage: UNK
     Route: 065
  2. TACROLIMUS [Suspect]
     Active Substance: TACROLIMUS
     Indication: Interstitial lung disease
  3. TOFACITINIB [Suspect]
     Active Substance: TOFACITINIB
     Indication: Dermatomyositis
     Dosage: UNK
     Route: 065
  4. TOFACITINIB [Suspect]
     Active Substance: TOFACITINIB
     Indication: Interstitial lung disease
  5. CYCLOPHOSPHAMIDE [Suspect]
     Active Substance: CYCLOPHOSPHAMIDE
     Indication: Dermatomyositis
     Dosage: UNK (EVERY FOUR WEEKS)
     Route: 042
  6. CYCLOPHOSPHAMIDE [Suspect]
     Active Substance: CYCLOPHOSPHAMIDE
     Indication: Interstitial lung disease
     Dosage: UNK (EIGHTH COURSE)
     Route: 042
  7. PREDNISOLONE [Suspect]
     Active Substance: PREDNISOLONE
     Indication: Dermatomyositis
     Dosage: UNK
     Route: 065
  8. PREDNISOLONE [Suspect]
     Active Substance: PREDNISOLONE
     Indication: Interstitial lung disease
     Dosage: UNK (TAPERED DOSE)
     Route: 065

REACTIONS (4)
  - Bronchopulmonary aspergillosis [Recovering/Resolving]
  - Scedosporium infection [Recovering/Resolving]
  - Pneumonia fungal [Recovering/Resolving]
  - Interstitial lung disease [Recovering/Resolving]
